FAERS Safety Report 5915562-2 (Version None)
Quarter: 2008Q4

REPORT INFORMATION
  Report Type: 
  Country: None (occurrence: None)
  Receive Date: 20081010
  Receipt Date: 20080813
  Transmission Date: 20090506
  Serious: No
  Sender: FDA-Public Use
  Company Number: A0742448A

PATIENT
  Age: 64 Year
  Sex: Female

DRUGS (6)
  1. TYKERB [Suspect]
     Indication: BREAST CANCER
     Dosage: 5TAB PER DAY
     Route: 048
     Dates: start: 20080101
  2. OXYCODONE HCL [Concomitant]
  3. FENTANYL TRANSDERMAL SYSTEM [Concomitant]
  4. PREDNISONE TAB [Concomitant]
  5. LOVENOX [Concomitant]
  6. ACYCLOVIR SODIUM [Concomitant]

REACTIONS (3)
  - ABDOMINAL DISCOMFORT [None]
  - DIARRHOEA [None]
  - INSOMNIA [None]
